FAERS Safety Report 23815839 (Version 7)
Quarter: 2025Q1

REPORT INFORMATION
  Report Type: Report from Study
  Country: JP (occurrence: JP)
  Receive Date: 20240503
  Receipt Date: 20250328
  Transmission Date: 20250409
  Serious: Yes (Death, Hospitalization, Other)
  Sender: SHIONOGI
  Company Number: JP-shionogi-202403415_FTR_P_1

PATIENT
  Age: 42 Year
  Sex: Male
  Weight: 69.6 kg

DRUGS (16)
  1. CEFIDEROCOL [Suspect]
     Active Substance: CEFIDEROCOL
     Indication: Haematological infection
     Route: 041
     Dates: start: 20240418, end: 20240425
  2. CEFIDEROCOL [Suspect]
     Active Substance: CEFIDEROCOL
     Indication: Febrile neutropenia
     Route: 041
     Dates: start: 20240426, end: 20240427
  3. AZACTAM [Concomitant]
     Active Substance: AZTREONAM
     Indication: Haematological infection
     Route: 065
     Dates: start: 20240421, end: 20240427
  4. AZACTAM [Concomitant]
     Active Substance: AZTREONAM
     Indication: Febrile neutropenia
  5. AMIKACIN SULFATE [Concomitant]
     Active Substance: AMIKACIN SULFATE
     Indication: Haematological infection
     Route: 065
     Dates: start: 20240419, end: 20240426
  6. AMIKACIN SULFATE [Concomitant]
     Active Substance: AMIKACIN SULFATE
     Indication: Febrile neutropenia
  7. SOLU-MEDROL [Concomitant]
     Active Substance: METHYLPREDNISOLONE SODIUM SUCCINATE
     Indication: Haemophagocytic lymphohistiocytosis
     Route: 065
     Dates: start: 20240425, end: 20240427
  8. TYGACIL [Concomitant]
     Active Substance: TIGECYCLINE
     Indication: Haematological infection
     Route: 065
     Dates: start: 20240416, end: 20240416
  9. TYGACIL [Concomitant]
     Active Substance: TIGECYCLINE
     Indication: Febrile neutropenia
     Route: 065
     Dates: start: 20240417, end: 20240418
  10. TYGACIL [Concomitant]
     Active Substance: TIGECYCLINE
     Route: 065
     Dates: start: 20240426, end: 20240427
  11. THROMBOMODULIN ALFA [Concomitant]
     Active Substance: THROMBOMODULIN ALFA
     Indication: Disseminated intravascular coagulation
     Route: 065
     Dates: start: 20240426, end: 20240427
  12. HUMAN RED BLOOD CELL [Concomitant]
     Active Substance: HUMAN RED BLOOD CELL
     Indication: Product used for unknown indication
     Dosage: SINCE BEFORE THE START OF FETROJA
     Route: 065
     Dates: end: 20240427
  13. PLATELETS [Concomitant]
     Active Substance: HUMAN PLATELET, ALLOGENIC
     Indication: Product used for unknown indication
     Dosage: SINCE BEFORE THE START OF FETROJA
     Route: 065
     Dates: end: 20240426
  14. ALBUMIN HUMAN [Concomitant]
     Active Substance: ALBUMIN HUMAN
     Indication: Product used for unknown indication
     Route: 042
     Dates: end: 20240426
  15. FRESH FROZEN PLASMA-LEUKOCYTES REDUCED 480 [Concomitant]
     Indication: Product used for unknown indication
     Route: 065
     Dates: start: 20240426, end: 20240426
  16. FRESH FROZEN PLASMA-LEUKOCYTES REDUCED 480 [Concomitant]
     Indication: Haemophagocytic lymphohistiocytosis

REACTIONS (6)
  - Acute myeloid leukaemia [Fatal]
  - Haematological infection [Fatal]
  - Febrile neutropenia [Fatal]
  - Renal impairment [Not Recovered/Not Resolved]
  - Haemophagocytic lymphohistiocytosis [Not Recovered/Not Resolved]
  - Disseminated intravascular coagulation [Not Recovered/Not Resolved]

NARRATIVE: CASE EVENT DATE: 20240425
